FAERS Safety Report 12659675 (Version 1)
Quarter: 2016Q3

REPORT INFORMATION
  Report Type: Report from Study
  Country: US (occurrence: US)
  Receive Date: 20160817
  Receipt Date: 20160817
  Transmission Date: 20161109
  Serious: Yes (Death, Life-Threatening, Hospitalization, Disabling, Other)
  Sender: FDA-Public Use
  Company Number: US-009507513-1608USA007785

PATIENT
  Sex: Male

DRUGS (1)
  1. KEYTRUDA [Suspect]
     Active Substance: PEMBROLIZUMAB
     Dosage: 120 MG. EVERY 3 WEEKS
     Route: 042
     Dates: start: 20151130, end: 20160204

REACTIONS (3)
  - Bladder cancer [Fatal]
  - Urinary tract infection [Not Recovered/Not Resolved]
  - Acute kidney injury [Not Recovered/Not Resolved]
